FAERS Safety Report 18926720 (Version 1)
Quarter: 2021Q1

REPORT INFORMATION
  Report Type: Spontaneous
  Country: GB (occurrence: GB)
  Receive Date: 20210223
  Receipt Date: 20210223
  Transmission Date: 20210420
  Serious: Yes (Other)
  Sender: FDA-Public Use
  Company Number: GB-ACCORD-217734

PATIENT
  Age: 68 Year
  Sex: Female
  Weight: 220 kg

DRUGS (2)
  1. ATORVASTATIN/ATORVASTATIN CALCIUM [Suspect]
     Active Substance: ATORVASTATIN CALCIUM
     Indication: BLOOD CHOLESTEROL INCREASED
     Route: 048
     Dates: start: 20201015, end: 20210203
  2. TAMOXIFEN [Concomitant]
     Active Substance: TAMOXIFEN
     Indication: ILL-DEFINED DISORDER

REACTIONS (1)
  - Nasal congestion [Recovering/Resolving]

NARRATIVE: CASE EVENT DATE: 20201107
